FAERS Safety Report 7954739-1 (Version None)
Quarter: 2011Q4

REPORT INFORMATION
  Report Type: 
  Country: None (occurrence: None)
  Receive Date: 20111202
  Receipt Date: 20111121
  Transmission Date: 20120403
  Serious: Yes (Hospitalization)
  Sender: FDA-Public Use
  Company Number: JP-ROCHE-790625

PATIENT
  Age: 20 Year
  Sex: Male

DRUGS (24)
  1. MYCOPHENOLATE MOFETIL (CELLCEPT) [Suspect]
     Route: 048
     Dates: start: 20051006, end: 20051017
  2. MYCOPHENOLATE MOFETIL (CELLCEPT) [Suspect]
     Route: 048
     Dates: start: 20051018, end: 20051214
  3. LEVOTHYROXINE SODIUM [Concomitant]
     Indication: PROPHYLAXIS
     Dosage: DRUG: THYRADIN S(LEVOTHYROXINE SODIUM HYDRATE)
     Route: 048
     Dates: start: 20030619, end: 20061005
  4. PYDOXAL [Concomitant]
     Indication: PROPHYLAXIS
     Route: 048
     Dates: start: 20060105, end: 20060608
  5. NORVASC [Concomitant]
     Indication: PROPHYLAXIS
     Route: 048
     Dates: start: 20040122
  6. MUCOSTA [Concomitant]
     Indication: PROPHYLAXIS
     Dosage: FORM: PERORAL AGNET
     Route: 048
     Dates: start: 20050602, end: 20051005
  7. MYCOPHENOLATE MOFETIL (CELLCEPT) [Suspect]
     Indication: PROPHYLAXIS AGAINST TRANSPLANT REJECTION
     Route: 048
     Dates: start: 20030609, end: 20031119
  8. PREDNISOLONE [Suspect]
     Indication: PROPHYLAXIS AGAINST TRANSPLANT REJECTION
     Dosage: 2.525 MG
     Route: 048
     Dates: start: 20030609, end: 20060320
  9. CINAL [Concomitant]
     Indication: PROPHYLAXIS
     Dosage: FORM: PERORAL AGENT
     Route: 048
     Dates: start: 20030722, end: 20051214
  10. ENALAPRIL MALEATE [Concomitant]
     Indication: PROPHYLAXIS
     Dosage: DRUG: RENIVACE(ENALAPRIL MALEATE), 2.5210MG
     Route: 048
  11. SLOW-K [Concomitant]
     Indication: PROPHYLAXIS
     Route: 048
  12. MYCOPHENOLATE MOFETIL (CELLCEPT) [Suspect]
     Route: 048
     Dates: start: 20060105, end: 20060510
  13. PRAVASTATIN SODIUM [Concomitant]
     Route: 048
  14. OMEPRAZOLE [Concomitant]
     Indication: PROPHYLAXIS
     Route: 048
  15. JUVELA [Concomitant]
     Indication: PROPHYLAXIS
     Dosage: DRUG: JUVELA(TOCOPHEROL ACETATE), FORM: PERORAL AGENT
     Route: 048
  16. MYCOPHENOLATE MOFETIL (CELLCEPT) [Suspect]
     Route: 048
     Dates: start: 20050908, end: 20051005
  17. MYCOPHENOLATE MOFETIL (CELLCEPT) [Suspect]
     Route: 048
     Dates: start: 20051215, end: 20060104
  18. MYCOPHENOLATE MOFETIL (CELLCEPT) [Suspect]
     Route: 048
     Dates: start: 20060511, end: 20070513
  19. TACROLIMUS [Suspect]
     Indication: PROPHYLAXIS AGAINST TRANSPLANT REJECTION
     Dosage: DRUG: PROGRAF (TACROLIMUS HYDRATE), FORM: PERORAL AGENT, 449.5 MG
     Route: 048
  20. BUFFERIN [Concomitant]
     Indication: PROPHYLAXIS
     Route: 048
  21. PRAVASTATIN SODIUM [Concomitant]
     Indication: PROPHYLAXIS
     Dosage: DRUG: MEVALOTIN(PRAVASTATIN SODIUM)
     Route: 048
  22. MYCOPHENOLATE MOFETIL (CELLCEPT) [Suspect]
     Route: 048
     Dates: start: 20031120, end: 20050907
  23. SULFAMETHOXAZOLE AND TRIMETHOPRIM [Concomitant]
     Indication: PROPHYLAXIS
     Route: 048
  24. DOGMATYL [Concomitant]
     Indication: PROPHYLAXIS
     Route: 048

REACTIONS (9)
  - BRONCHITIS [None]
  - CORONARY ARTERY DISEASE [None]
  - BLOOD PRESSURE INCREASED [None]
  - PNEUMONIA [None]
  - BONE DENSITY DECREASED [None]
  - APHTHOUS STOMATITIS [None]
  - ASTHMA [None]
  - ECZEMA [None]
  - HERPES ZOSTER [None]
